FAERS Safety Report 6272276-X (Version None)
Quarter: 2009Q3

REPORT INFORMATION
  Report Type: 
  Country: None (occurrence: None)
  Receive Date: 20090717
  Receipt Date: 20090713
  Transmission Date: 20100115
  Serious: Yes (Death)
  Sender: FDA-Public Use
  Company Number: US-CELGENEUS-163-20785-09070863

PATIENT
  Sex: Male

DRUGS (1)
  1. THALOMID [Suspect]
     Indication: MYELOFIBROSIS
     Route: 048
     Dates: start: 20090101, end: 20090601

REACTIONS (4)
  - MYELODYSPLASTIC SYNDROME [None]
  - MYELOFIBROSIS [None]
  - RENAL FAILURE [None]
  - RESPIRATORY FAILURE [None]
